FAERS Safety Report 8109270-X (Version None)
Quarter: 2012Q1

REPORT INFORMATION
  Report Type: 
  Country: None (occurrence: None)
  Receive Date: 20120202
  Receipt Date: 20120120
  Transmission Date: 20120608
  Serious: Yes (Other)
  Sender: FDA-Public Use
  Company Number: DE-MYLANLABS-2012S1001464

PATIENT
  Age: 15 Year
  Sex: Female
  Weight: 63.4 kg

DRUGS (5)
  1. CLOZAPINE [Suspect]
     Indication: SCHIZOPHRENIA, PARANOID TYPE
     Dosage: 150-0-175 (LANGSAME STEIGERUNG)
     Route: 048
     Dates: start: 20091216, end: 20100116
  2. FLUOXETINE HYDROCHLORIDE [Concomitant]
     Indication: DEPRESSION
     Route: 048
     Dates: start: 20090925, end: 20100221
  3. LORAZEPAM [Concomitant]
     Indication: SUICIDAL IDEATION
     Route: 048
     Dates: start: 20091109, end: 20100225
  4. CLOZAPINE [Suspect]
     Dates: start: 20100218, end: 20100226
  5. TRUXAL [Concomitant]
     Indication: SUICIDAL IDEATION
     Route: 048
     Dates: start: 20090811

REACTIONS (3)
  - PERICARDIAL EFFUSION [None]
  - EOSINOPHIL COUNT DECREASED [None]
  - LEUKOCYTOSIS [None]
